FAERS Safety Report 8058259-8 (Version None)
Quarter: 2012Q1

REPORT INFORMATION
  Report Type: 
  Country: None (occurrence: None)
  Receive Date: 20120112
  Receipt Date: 20111227
  Transmission Date: 20120608
  Serious: Yes (Other)
  Sender: FDA-Public Use
  Company Number: 2012SP000974

PATIENT
  Age: 28 Year
  Sex: Female

DRUGS (2)
  1. GANIRELIX ACETATE INJECTION [Suspect]
     Indication: INFERTILITY
     Dates: end: 20090101
  2. PREGNYL (CHORIONIC GONADOTROPHAN) [Suspect]
     Indication: INFERTILITY
     Dosage: 6500 IU
     Dates: start: 20090101

REACTIONS (4)
  - OVARIAN HYPERSTIMULATION SYNDROME [None]
  - PREGNANCY [None]
  - ABORTION SPONTANEOUS [None]
  - MATERNAL EXPOSURE BEFORE PREGNANCY [None]
